FAERS Safety Report 22094044 (Version 1)
Quarter: 2023Q1

REPORT INFORMATION
  Report Type: Spontaneous
  Country: JP (occurrence: None)
  Receive Date: 20230314
  Receipt Date: 20230314
  Transmission Date: 20230417
  Serious: Yes (Other)
  Sender: FDA-Public Use
  Company Number: 2022A369255

PATIENT
  Age: 80 Year
  Sex: Female

DRUGS (8)
  1. LYNPARZA [Suspect]
     Active Substance: OLAPARIB
     Indication: Ovarian cancer
     Route: 048
     Dates: start: 20221010, end: 20221014
  2. LYNPARZA [Suspect]
     Active Substance: OLAPARIB
     Indication: Ovarian cancer
     Dosage: 600 MG, NUMBER OF SEPARATE DOSAGES UNKNOWN
     Route: 048
     Dates: start: 20221017, end: 20221018
  3. LYNPARZA [Suspect]
     Active Substance: OLAPARIB
     Indication: Ovarian cancer
     Dosage: 500 MG, NUMBER OF SEPARATE DOSAGES UNKNOWN
     Route: 048
     Dates: start: 20221031, end: 20221103
  4. LYNPARZA [Suspect]
     Active Substance: OLAPARIB
     Indication: Ovarian cancer
     Dosage: 500 MG, NUMBER OF SEPARATE DOSAGES UNKNOWN
     Route: 048
     Dates: start: 20221107, end: 20221109
  5. LYNPARZA [Suspect]
     Active Substance: OLAPARIB
     Indication: Ovarian cancer
     Dosage: 400 MG, NUMBER OF SEPARATE DOSAGES UNKNOWN
     Route: 048
     Dates: start: 20221121, end: 202301
  6. BEVACIZUMAB [Suspect]
     Active Substance: BEVACIZUMAB
     Indication: Ovarian cancer
     Dosage: DOSE UNKNOWN
     Dates: start: 20221010, end: 202301
  7. ALLEGRA [Concomitant]
     Active Substance: FEXOFENADINE HYDROCHLORIDE
     Dosage: DOSE UNKNOWN, 2 TIMES A DAY
     Route: 065
     Dates: start: 20221017
  8. PRIMPERAN [Concomitant]
     Active Substance: METOCLOPRAMIDE HYDROCHLORIDE
     Dosage: DOSE UNKNOWN, THREE TIMES A DAY
     Route: 065
     Dates: start: 20221017

REACTIONS (11)
  - Malignant neoplasm progression [Unknown]
  - Blood pressure increased [Not Recovered/Not Resolved]
  - Pruritus [Recovered/Resolved]
  - Hot flush [Not Recovered/Not Resolved]
  - Urticaria [Recovered/Resolved]
  - Pyrexia [Recovered/Resolved]
  - Nausea [Recovered/Resolved]
  - Headache [Recovered/Resolved]
  - Rash [Recovered/Resolved]
  - Erythema [Recovered/Resolved]
  - Drug eruption [Recovered/Resolved]

NARRATIVE: CASE EVENT DATE: 20220101
